FAERS Safety Report 9390793 (Version 1)
Quarter: 2013Q3

REPORT INFORMATION
  Report Type: Spontaneous
  Country: US (occurrence: None)
  Receive Date: 20130705
  Receipt Date: 20130705
  Transmission Date: 20140515
  Serious: Yes (Disabling)
  Sender: FDA-Public Use
  Company Number: None

PATIENT
  Age: 56 Year
  Sex: Female
  Weight: 60.33 kg

DRUGS (1)
  1. SUNSCREEN [Suspect]

REACTIONS (4)
  - Abdominal pain [None]
  - Abdominal distension [None]
  - Endometriosis [None]
  - Disease recurrence [None]
